FAERS Safety Report 6286467-5 (Version None)
Quarter: 2009Q3

REPORT INFORMATION
  Report Type: 
  Country: None (occurrence: None)
  Receive Date: 20090728
  Receipt Date: 20090720
  Transmission Date: 20100115
  Serious: Yes (Other)
  Sender: FDA-Public Use
  Company Number: B0584754A

PATIENT
  Age: 21 Year
  Sex: Female

DRUGS (2)
  1. AMOXICILLIN AND CLAVULANATE POTASSIUM [Suspect]
  2. ONE-ALPHA [Suspect]

REACTIONS (2)
  - CHOLANGITIS [None]
  - HYPERCALCAEMIA [None]
